FAERS Safety Report 17171595 (Version 1)
Quarter: 2019Q4

REPORT INFORMATION
  Report Type: Spontaneous
  Country: NL (occurrence: NL)
  Receive Date: 20191218
  Receipt Date: 20191218
  Transmission Date: 20200122
  Serious: Yes (Hospitalization)
  Sender: FDA-Public Use
  Company Number: NL-JNJFOC-20191222369

PATIENT
  Age: 77 Year
  Sex: Male
  Weight: 91 kg

DRUGS (14)
  1. ROSUVASTATIN. [Concomitant]
     Active Substance: ROSUVASTATIN
     Dosage: 1DD1
  2. METFORMIN [Concomitant]
     Active Substance: METFORMIN HYDROCHLORIDE
     Dosage: 2DD1
  3. TAMSULOSIN [Concomitant]
     Active Substance: TAMSULOSIN
     Dosage: 0.4 MG, QD
  4. OMEPRAZOLE. [Concomitant]
     Active Substance: OMEPRAZOLE
  5. COTRIMOXAZOL [Suspect]
     Active Substance: SULFAMETHOXAZOLE\TRIMETHOPRIM
     Indication: URINARY TRACT INFECTION
     Dosage: 2X DAAGS 960MG
     Route: 048
     Dates: start: 201910, end: 201910
  6. COLECALCIFEROL [Concomitant]
     Active Substance: CHOLECALCIFEROL
     Dosage: 1DD1
  7. FML FORTE [Concomitant]
     Active Substance: FLUOROMETHOLONE
     Dosage: 1X PER DAG 1 DRUPPEL IN BEIDE OGEN
  8. TOLBUTAMIDE. [Concomitant]
     Active Substance: TOLBUTAMIDE
  9. XARELTO [Suspect]
     Active Substance: RIVAROXABAN
     Indication: ATRIAL FIBRILLATION
     Dosage: 20MG 1DD
     Route: 048
     Dates: start: 201910, end: 201910
  10. SOTALOL. [Concomitant]
     Active Substance: SOTALOL
     Dosage: 1DD1
  11. CHLOORAMFENICOL OOGZALF, 10 MG/G (MILLIGRAM PER GRAM) [Suspect]
     Active Substance: CHLORAMPHENICOL
     Indication: CORNEAL EROSION
     Dosage: 2X PER DAG 1 DRUPPEL IN HET RECHTER OOG
     Route: 047
     Dates: start: 201904, end: 201910
  12. COSOPT [Concomitant]
     Active Substance: DORZOLAMIDE HYDROCHLORIDE\TIMOLOL MALEATE
     Dosage: 2X PER DAG 1 DRUPPEL IN RECHTER OOG
  13. NATRIUM CHLORIDE [Concomitant]
     Active Substance: SODIUM CHLORIDE
     Dosage: 3DD
  14. LANTUS [Concomitant]
     Active Substance: INSULIN GLARGINE
     Dosage: 1X PER DAG 100 EENHEDEN

REACTIONS (2)
  - Neutropenia [Recovered/Resolved]
  - Leukopenia [Recovered/Resolved]

NARRATIVE: CASE EVENT DATE: 20191024
